FAERS Safety Report 4592731-8 (Version None)
Quarter: 2005Q1

REPORT INFORMATION
  Report Type: 
  Country: None (occurrence: None)
  Receive Date: 20050222
  Receipt Date: 20050209
  Transmission Date: 20050727
  Serious: Yes (Hospitalization)
  Sender: FDA-Public Use
  Company Number: 2005027771

PATIENT
  Age: 20 Year
  Sex: Male

DRUGS (2)
  1. ZELDOX (CAPSULES) (ZIPRASIDONE) [Suspect]
     Indication: BIPOLAR DISORDER
     Dosage: 20 MG (20 MG, 1 IN 1 D), ORAL
     Route: 048
  2. VALPROIC ACID [Concomitant]

REACTIONS (3)
  - DISEASE RECURRENCE [None]
  - DIZZINESS [None]
  - TREATMENT NONCOMPLIANCE [None]
